FAERS Safety Report 19618303 (Version 2)
Quarter: 2021Q3

REPORT INFORMATION
  Report Type: Spontaneous
  Country: US (occurrence: US)
  Receive Date: 20210728
  Receipt Date: 20210809
  Transmission Date: 20211014
  Serious: Yes (Other)
  Sender: FDA-Public Use
  Company Number: US-CIPLA LTD.-2021US05155

PATIENT

DRUGS (3)
  1. ELIQUIS [Concomitant]
     Active Substance: APIXABAN
     Indication: ANTIPLATELET THERAPY
     Dosage: UNK
     Route: 065
  2. AMLODIPINE [Suspect]
     Active Substance: AMLODIPINE BESYLATE
     Indication: BLOOD PRESSURE INCREASED
     Dosage: 2.5 MILLIGRAM
     Route: 065
  3. BARBERRY [BERBERIS VULGARIS] [Concomitant]
     Indication: CARDIOVASCULAR DISORDER
     Dosage: UNKNOWN
     Route: 065

REACTIONS (8)
  - Musculoskeletal stiffness [Unknown]
  - Anxiety [Unknown]
  - Dyspnoea [Unknown]
  - Nausea [Unknown]
  - Nasal congestion [Unknown]
  - Insomnia [Unknown]
  - Drug ineffective [Unknown]
  - Treatment noncompliance [Unknown]
